FAERS Safety Report 18340116 (Version 2)
Quarter: 2021Q1

REPORT INFORMATION
  Report Type: Report from Study
  Country: US (occurrence: US)
  Receive Date: 20201002
  Receipt Date: 20210305
  Transmission Date: 20210419
  Serious: Yes (Hospitalization)
  Sender: FDA-Public Use
  Company Number: US-EISAI MEDICAL RESEARCH-EC-2020-073441

PATIENT
  Age: 67 Year
  Sex: Female
  Weight: 92 kg

DRUGS (21)
  1. LENVIMA [Suspect]
     Active Substance: LENVATINIB
     Indication: ENDOMETRIAL CANCER
     Route: 048
     Dates: start: 202002
  2. CIPROFLOXACIN. [Concomitant]
     Active Substance: CIPROFLOXACIN
  3. NASACORT [Concomitant]
     Active Substance: TRIAMCINOLONE ACETONIDE
  4. LOW DOSE ASPIRIN [Concomitant]
     Active Substance: ASPIRIN
  5. COMBIVENT [Concomitant]
     Active Substance: ALBUTEROL SULFATE\IPRATROPIUM BROMIDE
  6. DIGOXIN. [Concomitant]
     Active Substance: DIGOXIN
  7. IMODIUM [Concomitant]
     Active Substance: LOPERAMIDE HYDROCHLORIDE
  8. KEYTRUDA [Concomitant]
     Active Substance: PEMBROLIZUMAB
  9. VITAMIN B12 [Concomitant]
     Active Substance: CYANOCOBALAMIN
  10. LENVIMA [Suspect]
     Active Substance: LENVATINIB
     Route: 048
  11. TYLENOL EXTRA STRENGTH [Concomitant]
     Active Substance: ACETAMINOPHEN
  12. METOPROLOL. [Concomitant]
     Active Substance: METOPROLOL
  13. NITROSTAT [Concomitant]
     Active Substance: NITROGLYCERIN
  14. PANTOPRAZOLE [Concomitant]
     Active Substance: PANTOPRAZOLE
  15. CARISOPRODOL. [Concomitant]
     Active Substance: CARISOPRODOL
  16. CELEBREX [Concomitant]
     Active Substance: CELECOXIB
  17. CLARITIN [Concomitant]
     Active Substance: LORATADINE
  18. LOPERAMIDE [Concomitant]
     Active Substance: LOPERAMIDE
  19. ATORVASTATIN [Concomitant]
     Active Substance: ATORVASTATIN
  20. CELECOXIB. [Concomitant]
     Active Substance: CELECOXIB
  21. GLIPIZIDE?METFORMIN [Concomitant]

REACTIONS (20)
  - Diarrhoea [Recovering/Resolving]
  - Headache [Unknown]
  - Nausea [Unknown]
  - Malignant neoplasm progression [Unknown]
  - Weight decreased [Not Recovered/Not Resolved]
  - Decreased appetite [Recovering/Resolving]
  - Taste disorder [Unknown]
  - Dehydration [Unknown]
  - Urine output decreased [Unknown]
  - Stomatitis [Unknown]
  - Renal impairment [Unknown]
  - Dysuria [Unknown]
  - Blood pressure increased [Recovered/Resolved]
  - Chromaturia [Unknown]
  - Vomiting [Unknown]
  - Hallucination [Unknown]
  - Hypophagia [Unknown]
  - Abdominal pain upper [Unknown]
  - Muscle spasms [Unknown]
  - Back pain [Unknown]

NARRATIVE: CASE EVENT DATE: 2020
